FAERS Safety Report 8397289-3 (Version None)
Quarter: 2012Q2

REPORT INFORMATION
  Report Type: 
  Country: None (occurrence: None)
  Receive Date: 20120531
  Receipt Date: 20120522
  Transmission Date: 20120825
  Serious: Yes (Hospitalization)
  Sender: FDA-Public Use
  Company Number: US-BIOGENIDEC-2008BI028100

PATIENT
  Age: 57 Year
  Sex: Female

DRUGS (3)
  1. AVONEX [Suspect]
     Route: 030
     Dates: start: 20030901, end: 20090228
  2. AVONEX [Suspect]
     Indication: MULTIPLE SCLEROSIS
     Route: 030
     Dates: start: 20010402, end: 20030801
  3. AVONEX [Suspect]
     Route: 030
     Dates: start: 20110921

REACTIONS (6)
  - INTERVERTEBRAL DISC INJURY [None]
  - MULTIPLE SCLEROSIS RELAPSE [None]
  - BLOOD PRESSURE INCREASED [None]
  - BACK PAIN [None]
  - FALL [None]
  - OSTEOPOROSIS [None]
